FAERS Safety Report 8760363 (Version 1)
Quarter: 2012Q4

REPORT INFORMATION
  Report Type: Spontaneous
  Country: US (occurrence: None)
  Receive Date: 20120829
  Receipt Date: 20120829
  Transmission Date: 20130627
  Serious: Yes (Other)
  Sender: FDA-Public Use
  Company Number: None

PATIENT
  Age: 54 Year
  Sex: Female
  Weight: 69.85 kg

DRUGS (1)
  1. BENICAR HCT [Suspect]
     Dosage: One tablet
     Route: 048
     Dates: start: 20120823, end: 20120828

REACTIONS (8)
  - Headache [None]
  - Myalgia [None]
  - Muscle spasms [None]
  - Muscle spasms [None]
  - Muscle spasms [None]
  - Impaired work ability [None]
  - Pollakiuria [None]
  - Pelvic pain [None]
